FAERS Safety Report 12464714 (Version 1)
Quarter: 2016Q2

REPORT INFORMATION
  Report Type: Spontaneous
  Country: US (occurrence: US)
  Receive Date: 20160614
  Receipt Date: 20160614
  Transmission Date: 20160815
  Serious: No
  Sender: FDA-Public Use
  Company Number: US-TORRENT-00001197

PATIENT
  Sex: Female

DRUGS (1)
  1. MINOCYCLINE HYDROCHLORIDE CAPSULE [Suspect]
     Active Substance: MINOCYCLINE HYDROCHLORIDE
     Indication: PRODUCT USED FOR UNKNOWN INDICATION
     Dosage: 1 DAILY
     Route: 048

REACTIONS (2)
  - Oral discomfort [Unknown]
  - Dysgeusia [Unknown]
